FAERS Safety Report 6097089-3 (Version None)
Quarter: 2009Q1

REPORT INFORMATION
  Report Type: 
  Country: None (occurrence: None)
  Receive Date: 20090227
  Receipt Date: 20081219
  Transmission Date: 20090719
  Serious: Yes (Death, Hospitalization)
  Sender: FDA-Public Use
  Company Number: CO-PFIZER INC-2009150897

PATIENT

DRUGS (5)
  1. LIPITOR [Suspect]
     Indication: HYPERLIPIDAEMIA
     Dosage: 10 MG, 1X/DAY
     Route: 048
     Dates: start: 20040819
  2. OLMETEC [Suspect]
     Dosage: 20 MG/ 12.5 MG
     Route: 048
     Dates: start: 20040819
  3. GLIBENCLAMIDE [Concomitant]
  4. ENALAPRIL [Concomitant]
  5. METILDIGOXIN [Concomitant]

REACTIONS (2)
  - DEATH [None]
  - SKIN ULCER [None]
